FAERS Safety Report 8818247 (Version 2)
Quarter: 2012Q4

REPORT INFORMATION
  Report Type: 
  Country: US (occurrence: US)
  Receive Date: 20121001
  Receipt Date: 20121204
  Transmission Date: 20130627
  Serious: Yes (Other)
  Sender: FDA-Public Use
  Company Number: US-GLAXOSMITHKLINE-A0995157A

PATIENT
  Age: 69 Year
  Sex: Female

DRUGS (4)
  1. INFLUENZA VACCINE [Suspect]
     Indication: PROPHYLAXIS
     Route: 065
     Dates: start: 201209, end: 201209
  2. ADVAIR [Suspect]
     Indication: MULTIPLE ALLERGIES
     Dosage: 1PUFF Per day
     Route: 055
     Dates: start: 2009
  3. SPIRIVA [Concomitant]
  4. FAMOTIDINE [Concomitant]

REACTIONS (4)
  - Pneumonia [Recovered/Resolved]
  - Cough [Recovered/Resolved]
  - Nasopharyngitis [Recovered/Resolved]
  - Off label use [Unknown]
